FAERS Safety Report 8047700-2 (Version None)
Quarter: 2012Q1

REPORT INFORMATION
  Report Type: 
  Country: None (occurrence: None)
  Receive Date: 20120116
  Receipt Date: 20120106
  Transmission Date: 20120608
  Serious: Yes (Hospitalization)
  Sender: FDA-Public Use
  Company Number: DE-JNJFOC-20120100423

PATIENT
  Age: 42 Year
  Sex: Male
  Weight: 79 kg

DRUGS (2)
  1. DEXAMETHASONE SODIUM PHOSPHATE [Suspect]
     Indication: PROPHYLAXIS
     Dosage: EVERY 6 TO 8 WEEKS
     Route: 042
     Dates: start: 20080324, end: 20111108
  2. REMICADE [Suspect]
     Indication: COLITIS ULCERATIVE
     Dosage: 400 MG TO 800 MG (SOMETIMES EVERY 8 WEEKS AND SOMETIMES EVERY 4 WEEKS)
     Route: 042
     Dates: start: 20080824, end: 20111108

REACTIONS (1)
  - CEREBRAL INFARCTION [None]
